FAERS Safety Report 9230555 (Version 1)
Quarter: 2013Q2

REPORT INFORMATION
  Report Type: Spontaneous
  Country: CN (occurrence: CN)
  Receive Date: 20130415
  Receipt Date: 20130415
  Transmission Date: 20140414
  Serious: Yes (Hospitalization)
  Sender: FDA-Public Use
  Company Number: CN-SANOFI-AVENTIS-2013SA037428

PATIENT
  Age: 71 Year
  Sex: Male

DRUGS (3)
  1. DOCETAXEL [Suspect]
     Indication: ADENOCARCINOMA GASTRIC
     Dosage: 100 MG
     Route: 065
  2. OXALIPLATIN [Suspect]
     Indication: ADENOCARCINOMA GASTRIC
     Route: 065
  3. CAPECITABINE [Suspect]
     Indication: ADENOCARCINOMA GASTRIC
     Route: 048

REACTIONS (14)
  - Wernicke^s encephalopathy [Recovered/Resolved]
  - Nausea [Recovered/Resolved]
  - Vomiting [Recovered/Resolved]
  - Dizziness [Recovered/Resolved]
  - Vision blurred [Recovered/Resolved]
  - Diplopia [Recovered/Resolved]
  - Somnolence [Recovered/Resolved]
  - Gait disturbance [Recovered/Resolved]
  - Coma [Recovered/Resolved]
  - Slow response to stimuli [Recovered/Resolved]
  - Nystagmus [Recovered/Resolved]
  - Protrusion tongue [Recovered/Resolved]
  - Muscular weakness [Recovered/Resolved]
  - Retrograde amnesia [Recovered/Resolved]
